FAERS Safety Report 8294392-3 (Version None)
Quarter: 2012Q2

REPORT INFORMATION
  Report Type: 
  Country: None (occurrence: None)
  Receive Date: 20120416
  Receipt Date: 20120412
  Transmission Date: 20120825
  Serious: Yes (Other)
  Sender: FDA-Public Use
  Company Number: ADR-2011-11301

PATIENT
  Sex: Male

DRUGS (9)
  1. VALIUM [Concomitant]
  2. ELAVIL [Concomitant]
  3. NORCO [Concomitant]
  4. MULTI-VITAMIN [Concomitant]
  5. ZESTRIL [Concomitant]
  6. DEPAKOTE [Concomitant]
  7. LASIX [Concomitant]
  8. LEVOTHROID [Concomitant]
  9. LIORESAL [Suspect]
     Indication: MUSCLE SPASTICITY
     Dosage: SEE B5

REACTIONS (8)
  - MEDICAL DEVICE COMPLICATION [None]
  - INFLAMMATION [None]
  - SPINAL CORD OEDEMA [None]
  - PAIN IN EXTREMITY [None]
  - ABSCESS [None]
  - DERMAL CYST [None]
  - EXCESSIVE GRANULATION TISSUE [None]
  - CENTRAL NERVOUS SYSTEM MASS [None]
